FAERS Safety Report 7345920-3 (Version None)
Quarter: 2011Q1

REPORT INFORMATION
  Report Type: 
  Country: None (occurrence: None)
  Receive Date: 20110311
  Receipt Date: 20110304
  Transmission Date: 20110831
  Serious: No
  Sender: FDA-Public Use
  Company Number: US-BIOGENIDEC-2011BI008417

PATIENT
  Age: 33 Year
  Sex: Male

DRUGS (1)
  1. TYSABRI [Suspect]
     Indication: MULTIPLE SCLEROSIS
     Dates: start: 20080312

REACTIONS (3)
  - RASH [None]
  - MULTIPLE SCLEROSIS RELAPSE [None]
  - MIGRAINE [None]
